FAERS Safety Report 15065278 (Version 1)
Quarter: 2018Q2

REPORT INFORMATION
  Report Type: Spontaneous
  Country: FR (occurrence: FR)
  Receive Date: 20180626
  Receipt Date: 20180626
  Transmission Date: 20180711
  Serious: Yes (Other)
  Sender: FDA-Public Use
  Company Number: FR-ROCHE-2141460

PATIENT
  Age: 32 Year
  Sex: Female

DRUGS (1)
  1. PEGASYS [Suspect]
     Active Substance: PEGINTERFERON ALFA-2A
     Indication: SYSTEMIC MASTOCYTOSIS
     Route: 058
     Dates: start: 201803

REACTIONS (6)
  - Lymphadenopathy [Not Recovered/Not Resolved]
  - Gallbladder enlargement [Not Recovered/Not Resolved]
  - Pain [Recovered/Resolved]
  - Mixed liver injury [Not Recovered/Not Resolved]
  - Abdominal pain upper [Not Recovered/Not Resolved]
  - Asthenia [Recovered/Resolved]

NARRATIVE: CASE EVENT DATE: 201804
